FAERS Safety Report 19967481 (Version 1)
Quarter: 2021Q4

REPORT INFORMATION
  Report Type: Spontaneous
  Country: US (occurrence: US)
  Receive Date: 20211019
  Receipt Date: 20211019
  Transmission Date: 20220303
  Serious: No
  Sender: FDA-Public Use
  Company Number: US-LUPIN PHARMACEUTICALS INC.-2021-19519

PATIENT
  Age: 70 Year
  Sex: Male

DRUGS (3)
  1. TRIAMCINOLONE [Suspect]
     Active Substance: TRIAMCINOLONE
     Indication: Scrotal dermatitis
     Dosage: UNK
     Route: 061
  2. DOXYCYCLINE [Suspect]
     Active Substance: DOXYCYCLINE
     Indication: Scrotal dermatitis
     Dosage: 100 MILLIGRAM, BID
     Route: 065
  3. ZINC OXIDE [Suspect]
     Active Substance: ZINC OXIDE
     Indication: Scrotal dermatitis
     Dosage: UNK
     Route: 061

REACTIONS (1)
  - Drug ineffective [Unknown]
